FAERS Safety Report 13628957 (Version 2)
Quarter: 2017Q2

REPORT INFORMATION
  Report Type: Spontaneous
  Country: US (occurrence: US)
  Receive Date: 20170608
  Receipt Date: 20170613
  Transmission Date: 20170830
  Serious: No
  Sender: FDA-Public Use
  Company Number: US-PFIZER INC-2017245524

PATIENT
  Age: 88 Year
  Sex: Female
  Weight: 59 kg

DRUGS (2)
  1. GABAPENTIN. [Suspect]
     Active Substance: GABAPENTIN
     Dosage: 1 DF, 1X/DAY (TOOK ONE GABAPENTIN IN THE MORNING)
  2. GABAPENTIN. [Suspect]
     Active Substance: GABAPENTIN
     Indication: HERPES ZOSTER
     Dosage: 100 MG, UP TO 3 TIMES A DAY

REACTIONS (4)
  - Drug ineffective [Not Recovered/Not Resolved]
  - Circumstance or information capable of leading to medication error [Unknown]
  - Underdose [Unknown]
  - Dizziness [Unknown]

NARRATIVE: CASE EVENT DATE: 20170606
